FAERS Safety Report 25429159 (Version 1)
Quarter: 2025Q2

REPORT INFORMATION
  Report Type: Report from Study
  Country: US (occurrence: US)
  Receive Date: 20250612
  Receipt Date: 20250612
  Transmission Date: 20250716
  Serious: Yes (Hospitalization)
  Sender: ROCHE
  Company Number: US-ROCHE-10000303666

PATIENT
  Age: 69 Year
  Sex: Female

DRUGS (31)
  1. RITUXAN [Suspect]
     Active Substance: RITUXIMAB
     Indication: Sarcoidosis
     Dosage: SIZE AND STRENGTH: 100MG/10 ML, 375MG/M
     Route: 042
     Dates: start: 2018
  2. RITUXAN [Suspect]
     Active Substance: RITUXIMAB
     Indication: Demyelination
  3. MEDROL [Concomitant]
     Active Substance: METHYLPREDNISOLONE
     Route: 048
  4. LYRICA [Concomitant]
     Active Substance: PREGABALIN
     Dosage: 200 MG 1 CAPSULE ORALLY THREE TIMES A DAY
     Route: 048
  5. MEMANTINE [Concomitant]
     Active Substance: MEMANTINE
     Dosage: 10 MG 1 TABLET ORALLY TWICE A DAY
     Route: 048
  6. SERTRALINE HYDROCHLORIDE [Concomitant]
     Active Substance: SERTRALINE HYDROCHLORIDE
     Dosage: 100 MG 1 TABLET ORALLY ONCE A DAY
     Route: 048
  7. SUMATRIPTAN SUCCINATE [Concomitant]
     Active Substance: SUMATRIPTAN SUCCINATE
  8. ATORVASTATIN CALCIUM [Concomitant]
     Active Substance: ATORVASTATIN CALCIUM
     Dosage: : 20 MG 1 TABLET ORALLY ONCE A DAY
     Route: 048
  9. TRAMADOL HCL [Concomitant]
     Active Substance: TRAMADOL HYDROCHLORIDE
     Route: 048
  10. NEXIUM [Concomitant]
     Active Substance: ESOMEPRAZOLE MAGNESIUM
     Dosage: 40 MG 1 CAPSULE ORALLY DAILY, 90 DAYS,90 CAPSULE, REFILLS: 1
     Route: 048
  11. OMEPRAZOLE [Concomitant]
     Active Substance: OMEPRAZOLE
     Route: 048
  12. VITAMIN C [Concomitant]
     Active Substance: ASCORBIC ACID
     Dosage: 500 MG 1 TABLET ORALLY ONCE A DAY
     Route: 048
  13. VITAMIN D3 [Concomitant]
     Active Substance: CHOLECALCIFEROL
     Dosage: 2000 UNIT 1 TABLET ORALLY ONCE A DAY
     Route: 048
  14. AIMOVIG [Concomitant]
     Active Substance: ERENUMAB-AOOE
     Dosage: 70 1 ML SUBCUTANEOUS MONTHLY
     Route: 058
  15. QULIPTA [Concomitant]
     Active Substance: ATOGEPANT
     Dosage: 60 MG 1 TABLET ORALLY ONCE A DAY, 30 DAY(S),30, REFILLS: 11
     Route: 048
  16. VITAMIN B12 [Concomitant]
     Active Substance: CYANOCOBALAMIN
     Dosage: 500 MCG 1 TABLET ORALLY ONCE A DAY
     Route: 048
  17. BACLOFEN [Concomitant]
     Active Substance: BACLOFEN
  18. CALCITONIN [Concomitant]
     Active Substance: CALCITONIN
  19. DONEPEZIL HYDROCHLORIDE [Concomitant]
     Active Substance: DONEPEZIL HYDROCHLORIDE
     Route: 048
  20. FLUDROCORTISONE ACETATE [Concomitant]
     Active Substance: FLUDROCORTISONE ACETATE
     Dosage: 0.1 MG 1 TABLET ORALLY TWICE A DAY
     Route: 048
  21. NABUMETONE [Concomitant]
     Active Substance: NABUMETONE
     Route: 048
  22. PREGABALIN [Concomitant]
     Active Substance: PREGABALIN
     Dosage: 200 MG CAPSULE 1 CAPSULE IN THE EVENING 1 TO 3 HOURS BEFORE BEDTIME ORALLY ONCE A DAY
     Route: 048
  23. ELIQUIS [Concomitant]
     Active Substance: APIXABAN
     Dosage: 5 MG TABLET 1 TABLET ORALLY TWICE A DAY
     Route: 048
  24. TYLENOL [Concomitant]
     Active Substance: ACETAMINOPHEN
  25. METHOCARBAMOL [Concomitant]
     Active Substance: METHOCARBAMOL
     Dosage: 500 MG TABLET 1 TABLET IN THE AMAND 1.5 TABLET AT NIGHT ORALLY TWICE A DAY
     Route: 048
  26. RIVASTIGMINE [Concomitant]
     Active Substance: RIVASTIGMINE
     Route: 062
  27. NORTRIPTYLINE [Concomitant]
     Active Substance: NORTRIPTYLINE
     Route: 048
  28. DEPAKOTE [Concomitant]
     Active Substance: DIVALPROEX SODIUM
     Dosage: DEPAKOTE ER 500 MG TABLET EXTENDED RELEASE 24 HOUR 1 TABLET AT BEDTIME ORALLY ONCE A DAY
     Route: 048
  29. XEOMIN [Concomitant]
     Active Substance: INCOBOTULINUMTOXINA
     Dosage: SOLUTION RECONSTITUTED AS DIRECTED INJECT 155UNITS?INJECT 155UNITS IMINTO HEAD AND NECK EVERY 3 MONT
  30. PANTOPRAZOLE SODIUM [Concomitant]
     Active Substance: PANTOPRAZOLE SODIUM
  31. UBRELVY [Concomitant]
     Active Substance: UBROGEPANT
     Route: 048

REACTIONS (15)
  - Gait disturbance [Unknown]
  - Muscular weakness [Unknown]
  - Mean cell haemoglobin concentration decreased [Unknown]
  - Off label use [Unknown]
  - Dysphagia [Unknown]
  - Oropharyngeal pain [Unknown]
  - Cough [Unknown]
  - Abdominal pain [Unknown]
  - Dyspepsia [Unknown]
  - Pain [Unknown]
  - Dizziness [Unknown]
  - Balance disorder [Unknown]
  - Dyspnoea [Unknown]
  - Orthostatic hypotension [Unknown]
  - Memory impairment [Unknown]

NARRATIVE: CASE EVENT DATE: 20230123
